FAERS Safety Report 9399268 (Version 2)
Quarter: 2013Q3

REPORT INFORMATION
  Report Type: Spontaneous
  Country: US (occurrence: None)
  Receive Date: 20130709
  Receipt Date: 20130827
  Transmission Date: 20140515
  Serious: Yes (Other)
  Sender: FDA-Public Use
  Company Number: 2013-002171

PATIENT
  Age: 75 Year
  Sex: Female

DRUGS (3)
  1. ACTONEL [Suspect]
     Indication: BONE DENSITY DECREASED
     Dosage: ONCE WEEKLY
     Route: 048
  2. FIORICET (BUTALBITAL, CAFFEINE, PARACETAMOL) [Concomitant]
  3. LEVOXYL (LEVOTHYROXINE SODIUM) [Concomitant]

REACTIONS (1)
  - Lumbar spinal stenosis [None]
